FAERS Safety Report 13280809 (Version 1)
Quarter: 2017Q1

REPORT INFORMATION
  Report Type: Spontaneous
  Country: US (occurrence: US)
  Receive Date: 20170301
  Receipt Date: 20170301
  Transmission Date: 20170428
  Serious: No
  Sender: FDA-Public Use
  Company Number: US-INSYS THERAPEUTICS, INC-INS201601-000044

PATIENT
  Age: 49 Year
  Sex: Female
  Weight: 49.89 kg

DRUGS (5)
  1. SUBSYS [Suspect]
     Active Substance: FENTANYL
  2. DIAZEPAM. [Concomitant]
     Active Substance: DIAZEPAM
     Indication: PAIN
  3. SUBSYS [Suspect]
     Active Substance: FENTANYL
  4. MORPHINE SULPHATE [Concomitant]
     Active Substance: MORPHINE SULFATE
     Indication: PAIN
  5. SUBSYS [Suspect]
     Active Substance: FENTANYL
     Indication: PAIN
     Dates: end: 20151230

REACTIONS (1)
  - Drug withdrawal syndrome [Not Recovered/Not Resolved]

NARRATIVE: CASE EVENT DATE: 20160110
